FAERS Safety Report 15715921 (Version 2)
Quarter: 2018Q4

REPORT INFORMATION
  Report Type: Report from Study
  Country: None (occurrence: US)
  Receive Date: 20181212
  Receipt Date: 20181217
  Transmission Date: 20190205
  Serious: Yes (Other)
  Sender: FDA-Public Use
  Company Number: US-ABBVIE-18K-163-2582761-00

PATIENT
  Age: 40 Year
  Sex: Female
  Weight: 61.29 kg

DRUGS (2)
  1. HUMIRA [Suspect]
     Active Substance: ADALIMUMAB
     Route: 058
  2. HUMIRA [Suspect]
     Active Substance: ADALIMUMAB
     Indication: ARTHRALGIA
     Route: 058
     Dates: start: 201408

REACTIONS (12)
  - Osteoarthritis [Recovering/Resolving]
  - Adverse event [Unknown]
  - Back pain [Recovered/Resolved]
  - Muscle spasms [Recovered/Resolved]
  - Malocclusion [Recovering/Resolving]
  - Arthritis [Recovered/Resolved]
  - Alopecia [Unknown]
  - Post procedural infection [Unknown]
  - Osteitis [Unknown]
  - Muscle spasms [Not Recovered/Not Resolved]
  - Temporomandibular joint syndrome [Recovering/Resolving]
  - Back pain [Not Recovered/Not Resolved]

NARRATIVE: CASE EVENT DATE: 2017
